FAERS Safety Report 7743395-3 (Version None)
Quarter: 2011Q3

REPORT INFORMATION
  Report Type: 
  Country: None (occurrence: None)
  Receive Date: 20110819
  Receipt Date: 20110609
  Transmission Date: 20111222
  Serious: No
  Sender: FDA-Public Use
  Company Number: 033970

PATIENT
  Age: 69 Year
  Sex: Female

DRUGS (1)
  1. LACOSAMIDE [Suspect]
     Dates: end: 20110608

REACTIONS (2)
  - SKIN ODOUR ABNORMAL [None]
  - FLATULENCE [None]
